FAERS Safety Report 8834337 (Version 2)
Quarter: 2013Q1

REPORT INFORMATION
  Report Type: Spontaneous
  Country: US (occurrence: None)
  Receive Date: 20121009
  Receipt Date: 20121106
  Transmission Date: 20140127
  Serious: Yes (Hospitalization)
  Sender: FDA-Public Use
  Company Number: 2012-US-0251

PATIENT
  Sex: Female

DRUGS (4)
  1. SANCUSO [Suspect]
     Indication: PRODUCT USED FOR UNKNOWN INDICATION
     Dosage: 2ND CYCLE
     Route: 062
     Dates: start: 20120917, end: 20120920
  2. BLEOMYCIN (BLEOMYCIN SULFATE) [Concomitant]
  3. ETOPOSIDE [Concomitant]
  4. SANCUSO [Suspect]
     Indication: PRODUCT USED FOR UNKNOWN INDICATION
     Dosage: 1ST CYCLE
     Route: 062
     Dates: start: 20120828

REACTIONS (4)
  - Bradycardia [None]
  - Left atrial dilatation [None]
  - Mitral valve incompetence [None]
  - Cardiac myxoma [None]
